FAERS Safety Report 23090498 (Version 6)
Quarter: 2025Q1

REPORT INFORMATION
  Report Type: Spontaneous
  Country: US (occurrence: US)
  Receive Date: 20231020
  Receipt Date: 20250320
  Transmission Date: 20250409
  Serious: Yes (Other)
  Sender: PFIZER
  Company Number: US-PFIZER INC-PV202300171453

PATIENT
  Age: 76 Year
  Sex: Female

DRUGS (4)
  1. IBRANCE [Suspect]
     Active Substance: PALBOCICLIB
     Indication: Breast cancer metastatic
     Dates: start: 201708
  2. IBRANCE [Suspect]
     Active Substance: PALBOCICLIB
     Route: 048
     Dates: start: 201709
  3. LETROZOLE [Suspect]
     Active Substance: LETROZOLE
     Indication: Breast cancer metastatic
     Dates: start: 201708
  4. LETROZOLE [Suspect]
     Active Substance: LETROZOLE
     Dates: start: 201709

REACTIONS (12)
  - Glomerular filtration rate decreased [Unknown]
  - Memory impairment [Unknown]
  - Bone pain [Not Recovered/Not Resolved]
  - Spinal pain [Not Recovered/Not Resolved]
  - Blood glucose increased [Unknown]
  - Blood creatinine increased [Unknown]
  - Protein total decreased [Unknown]
  - Blood calcium increased [Unknown]
  - Blood bilirubin increased [Unknown]
  - Blood alkaline phosphatase increased [Unknown]
  - Globulins decreased [Unknown]
  - Carbohydrate antigen 27.29 increased [Unknown]

NARRATIVE: CASE EVENT DATE: 20200112
